FAERS Safety Report 21678615 (Version 1)
Quarter: 2022Q4

REPORT INFORMATION
  Report Type: Spontaneous
  Country: EG (occurrence: EG)
  Receive Date: 20221203
  Receipt Date: 20221203
  Transmission Date: 20230112
  Serious: Yes (Hospitalization, Other)
  Sender: FDA-Public Use
  Company Number: EG-NOVOPROD-985717

PATIENT
  Age: 68 Year
  Sex: Male
  Weight: 115 kg

DRUGS (3)
  1. NOVORAPID [Suspect]
     Active Substance: INSULIN ASPART
     Indication: Diabetes mellitus
     Dosage: 30 IU, TID
     Route: 058
  2. NOVORAPID [Suspect]
     Active Substance: INSULIN ASPART
     Dosage: 30 IU, TID
     Route: 058
  3. ATOREZA [Concomitant]
     Indication: Cardiac disorder
     Dosage: ONE TAB PER DAY
     Route: 048
     Dates: start: 2007

REACTIONS (3)
  - Diabetic coma [Recovered/Resolved]
  - Diabetes mellitus inadequate control [Not Recovered/Not Resolved]
  - Hypoglycaemia [Unknown]
